FAERS Safety Report 8439722-4 (Version None)
Quarter: 2012Q2

REPORT INFORMATION
  Report Type: 
  Country: None (occurrence: None)
  Receive Date: 20120615
  Receipt Date: 20120605
  Transmission Date: 20120825
  Serious: Yes (Hospitalization)
  Sender: FDA-Public Use
  Company Number: FR-PFIZER INC-2009301577

PATIENT
  Age: 24 Year
  Sex: Male

DRUGS (8)
  1. ZYPREXA [Suspect]
     Dosage: 5 MG, DAILY
     Route: 048
     Dates: start: 20091014
  2. ABILIFY [Suspect]
     Dosage: 30 MG, DAILY
     Route: 048
     Dates: start: 20090915, end: 20090921
  3. LEPTICUR [Suspect]
     Dosage: 10 MG, DAILY
     Route: 048
     Dates: start: 20090108, end: 20090921
  4. ABILIFY [Suspect]
     Indication: SCHIZOPHRENIA
     Dosage: 40 MG, DAILY
     Route: 048
     Dates: start: 20081201, end: 20090914
  5. TERCIAN [Suspect]
     Dosage: 150 MG, DAILY
     Route: 048
     Dates: start: 20090724, end: 20090921
  6. ATARAX [Suspect]
     Dosage: 300 MG, DAILY
     Route: 048
     Dates: start: 20090916, end: 20090921
  7. FLUANXOL [Suspect]
     Indication: SCHIZOPHRENIA
     Dosage: 4 %, UNK
     Route: 048
     Dates: start: 20081201
  8. ZYPREXA [Suspect]
     Dosage: 7.5 MG, DAILY
     Route: 048

REACTIONS (3)
  - ELECTROCARDIOGRAM REPOLARISATION ABNORMALITY [None]
  - BRADYCARDIA [None]
  - ATRIOVENTRICULAR BLOCK [None]
